FAERS Safety Report 15698474 (Version 2)
Quarter: 2018Q4

REPORT INFORMATION
  Report Type: Spontaneous
  Country: US (occurrence: US)
  Receive Date: 20181207
  Receipt Date: 20181217
  Transmission Date: 20190205
  Serious: Yes (Death, Life-Threatening, Hospitalization, Other)
  Sender: FDA-Public Use
  Company Number: US-BRISTOL-MYERS SQUIBB COMPANY-BMS-2018-115166

PATIENT
  Age: 74 Year
  Sex: Male
  Weight: 80.27 kg

DRUGS (3)
  1. ADRUCIL [Suspect]
     Active Substance: FLUOROURACIL
     Indication: NEOPLASM MALIGNANT
     Dosage: 1200 MG, QD
     Route: 042
     Dates: start: 20181118, end: 20181123
  2. TAXOL [Suspect]
     Active Substance: PACLITAXEL
     Indication: NEOPLASM MALIGNANT
     Dosage: 198 MG, QD
     Route: 042
     Dates: start: 20181119
  3. HYDREA [Suspect]
     Active Substance: HYDROXYUREA
     Indication: NEOPLASM MALIGNANT
     Dosage: 500 MG, BID
     Route: 048
     Dates: start: 20181118, end: 20181123

REACTIONS (5)
  - Pyrexia [Not Recovered/Not Resolved]
  - Death [Fatal]
  - White blood cell count decreased [Not Recovered/Not Resolved]
  - Loss of consciousness [Not Recovered/Not Resolved]
  - Septic shock [Not Recovered/Not Resolved]

NARRATIVE: CASE EVENT DATE: 20181130
